FAERS Safety Report 7122890-4 (Version None)
Quarter: 2010Q4

REPORT INFORMATION
  Report Type: 
  Country: None (occurrence: None)
  Receive Date: 20101124
  Receipt Date: 20101120
  Transmission Date: 20110411
  Serious: Yes (Hospitalization, Other)
  Sender: FDA-Public Use
  Company Number: CA-ABBOTT-10P-028-0687087-00

PATIENT
  Sex: Female
  Weight: 79.904 kg

DRUGS (10)
  1. HUMIRA [Suspect]
     Indication: CROHN'S DISEASE
     Route: 058
     Dates: start: 20080412
  2. HUMIRA [Suspect]
     Route: 058
     Dates: start: 20080101, end: 20080101
  3. HUMIRA [Suspect]
     Dates: start: 20090101, end: 20101101
  4. HUMIRA [Suspect]
     Dates: start: 20101101
  5. LASIX [Suspect]
     Indication: SWELLING
     Dosage: 1 PILL DAILY FOR 4 DAYS
     Route: 048
     Dates: start: 20080101
  6. MORPHINE [Suspect]
     Indication: POSTOPERATIVE ANALGESIA
     Route: 042
     Dates: start: 20081101
  7. PANTOLOC [Concomitant]
     Indication: PROPHYLAXIS
     Route: 048
  8. PANTOLOC [Concomitant]
     Indication: GASTRIC DISORDER
  9. CALCIUM [Concomitant]
     Indication: MINERAL SUPPLEMENTATION
     Route: 048
  10. CLONAZEPAM [Concomitant]
     Indication: INSOMNIA
     Dosage: AT BEDTIME
     Route: 048

REACTIONS (15)
  - ABSCESS LIMB [None]
  - CONFUSIONAL STATE [None]
  - CROHN'S DISEASE [None]
  - DIZZINESS [None]
  - ECZEMA [None]
  - FALL [None]
  - HAND FRACTURE [None]
  - INFECTION [None]
  - INJECTION SITE DISCOLOURATION [None]
  - JOINT SPRAIN [None]
  - OEDEMA PERIPHERAL [None]
  - PRURITUS GENERALISED [None]
  - SWELLING FACE [None]
  - TREMOR [None]
  - WEIGHT INCREASED [None]
